FAERS Safety Report 11090971 (Version 1)
Quarter: 2015Q2

REPORT INFORMATION
  Report Type: Spontaneous
  Country: US (occurrence: US)
  Receive Date: 20150505
  Receipt Date: 20150505
  Transmission Date: 20150821
  Serious: No
  Sender: FDA-Public Use
  Company Number: US-BAYER-2015-184427

PATIENT
  Age: 80 Year
  Sex: Female
  Weight: 56 kg

DRUGS (1)
  1. MIRALAX [Suspect]
     Active Substance: POLYETHYLENE GLYCOL 3350
     Indication: CONSTIPATION
     Dosage: DOSE, QD
     Route: 048
     Dates: start: 2015, end: 20150501

REACTIONS (2)
  - Incorrect drug administration duration [None]
  - Nausea [Recovered/Resolved]

NARRATIVE: CASE EVENT DATE: 2015
